FAERS Safety Report 5945339-3 (Version None)
Quarter: 2008Q4

REPORT INFORMATION
  Report Type: 
  Country: None (occurrence: None)
  Receive Date: 20081107
  Receipt Date: 20081104
  Transmission Date: 20090506
  Serious: Yes (Hospitalization)
  Sender: FDA-Public Use
  Company Number: ZA-ROCHE-595248

PATIENT
  Sex: Female

DRUGS (1)
  1. KYTRIL [Suspect]
     Route: 048
     Dates: start: 20081001, end: 20081001

REACTIONS (1)
  - CONVULSION [None]
